FAERS Safety Report 7485417-3 (Version None)
Quarter: 2011Q2

REPORT INFORMATION
  Report Type: 
  Country: None (occurrence: None)
  Receive Date: 20110502
  Receipt Date: 20110415
  Transmission Date: 20111010
  Serious: Yes (Other)
  Sender: FDA-Public Use
  Company Number: 2011028325

PATIENT
  Sex: Female

DRUGS (1)
  1. VIVAGLOBIN [Suspect]
     Dosage: SUBCUTANEOUS
     Route: 058
     Dates: start: 20110219, end: 20110219

REACTIONS (4)
  - DYSPNOEA [None]
  - EYE DISORDER [None]
  - NO REACTION ON PREVIOUS EXPOSURE TO DRUG [None]
  - CHEST PAIN [None]
